FAERS Safety Report 20139152 (Version 1)
Quarter: 2021Q4

REPORT INFORMATION
  Report Type: Spontaneous
  Country: US (occurrence: None)
  Receive Date: 20211201
  Receipt Date: 20211201
  Transmission Date: 20220303
  Serious: No
  Sender: FDA-Public Use
  Company Number: None

PATIENT
  Age: 58 Year
  Sex: Female

DRUGS (1)
  1. COPAXONE [Suspect]
     Active Substance: GLATIRAMER ACETATE
     Dosage: OTHER FREQUENCY : OTHER;?
     Route: 058
     Dates: start: 201910

REACTIONS (2)
  - Blindness [None]
  - Condition aggravated [None]

NARRATIVE: CASE EVENT DATE: 20211105
